FAERS Safety Report 14799631 (Version 1)
Quarter: 2018Q2

REPORT INFORMATION
  Report Type: Report from Study
  Country: ES (occurrence: ES)
  Receive Date: 20180424
  Receipt Date: 20180424
  Transmission Date: 20180711
  Serious: Yes (Other)
  Sender: FDA-Public Use
  Company Number: ES-MYLANLABS-2018M1025654

PATIENT

DRUGS (3)
  1. IRINOTECAN [Suspect]
     Active Substance: IRINOTECAN
     Indication: GLIOMA
     Dosage: INITIAL DOSE NOT STATED
     Route: 050
  2. CISPLATIN. [Suspect]
     Active Substance: CISPLATIN
     Indication: GLIOMA
     Route: 050
  3. MANNITOL. [Concomitant]
     Active Substance: MANNITOL
     Indication: GLIOMA
     Dosage: 0.25 G/K MANNITOL PARALLEL WITH CISPLATIN
     Route: 050

REACTIONS (1)
  - Tumour haemorrhage [Unknown]
